FAERS Safety Report 9436609 (Version 1)
Quarter: 2013Q3

REPORT INFORMATION
  Report Type: Spontaneous
  Country: CR (occurrence: CR)
  Receive Date: 20130802
  Receipt Date: 20130802
  Transmission Date: 20140515
  Serious: Yes (Other)
  Sender: FDA-Public Use
  Company Number: CR-ROCHE-1255784

PATIENT
  Age: 30 Year
  Sex: Female
  Weight: 81 kg

DRUGS (3)
  1. MABTHERA [Suspect]
     Indication: IMMUNE THROMBOCYTOPENIC PURPURA
     Route: 042
     Dates: start: 20130708, end: 20130715
  2. DEXAMETHASONE [Concomitant]
     Route: 042
     Dates: start: 20130708, end: 20130715
  3. ACETAMINOPHEN [Concomitant]
     Route: 048
     Dates: start: 20130708, end: 20130715

REACTIONS (3)
  - Dyspnoea [Recovered/Resolved]
  - Arthritis [Recovered/Resolved]
  - Urticaria [Recovered/Resolved]
